FAERS Safety Report 5679470-7 (Version None)
Quarter: 2008Q1

REPORT INFORMATION
  Report Type: 
  Country: None (occurrence: None)
  Receive Date: 20080325
  Receipt Date: 20080313
  Transmission Date: 20080703
  Serious: Yes (Hospitalization, Other)
  Sender: FDA-Public Use
  Company Number: US-PFIZER INC-2008000283

PATIENT
  Sex: Male
  Weight: 78.9 kg

DRUGS (7)
  1. CHANTIX [Suspect]
     Indication: SMOKING CESSATION THERAPY
     Dates: start: 20071223, end: 20071225
  2. XANAX [Suspect]
  3. DEPAKOTE [Suspect]
  4. ZYPREXA [Suspect]
  5. SEROQUEL [Suspect]
  6. ALCOHOL [Suspect]
  7. PROTONIX [Concomitant]

REACTIONS (13)
  - CONFUSIONAL STATE [None]
  - CONVULSION [None]
  - FEELING ABNORMAL [None]
  - HYPERTENSION [None]
  - LETHARGY [None]
  - MENTAL STATUS CHANGES [None]
  - MOTOR DYSFUNCTION [None]
  - RESTLESSNESS [None]
  - SEDATION [None]
  - SOMNOLENCE [None]
  - TONGUE BITING [None]
  - TREMOR [None]
  - WITHDRAWAL SYNDROME [None]
